FAERS Safety Report 16006738 (Version 2)
Quarter: 2019Q1

REPORT INFORMATION
  Report Type: Spontaneous
  Country: US (occurrence: US)
  Receive Date: 20190226
  Receipt Date: 20190312
  Transmission Date: 20190418
  Serious: No
  Sender: FDA-Public Use
  Company Number: US-IRONWOOD PHARMACEUTICALS, INC.-IRWD2018004306

PATIENT

DRUGS (3)
  1. ALLOPURINOL. [Concomitant]
     Active Substance: ALLOPURINOL
     Indication: PRODUCT USED FOR UNKNOWN INDICATION
     Dosage: 200 MG, UNK
     Route: 065
  2. ZURAMPIC [Suspect]
     Active Substance: LESINURAD
     Indication: PRODUCT USED FOR UNKNOWN INDICATION
     Dosage: 200 MG, UNK
     Route: 065
  3. DUZALLO [Suspect]
     Active Substance: ALLOPURINOL\LESINURAD
     Indication: GOUT
     Dosage: 200/200 MG, QAM WITH FOOD
     Route: 048

REACTIONS (2)
  - Confusional state [Unknown]
  - Medication error [Unknown]
